FAERS Safety Report 5127421-6 (Version None)
Quarter: 2006Q4

REPORT INFORMATION
  Report Type: 
  Country: None (occurrence: None)
  Receive Date: 20061013
  Receipt Date: 20061013
  Transmission Date: 20070319
  Serious: Yes (Hospitalization)
  Sender: FDA-Public Use
  Company Number: None

PATIENT
  Age: 26 Year
  Sex: Male
  Weight: 81 kg

DRUGS (5)
  1. CLOZAPINE [Suspect]
     Indication: SCHIZOPHRENIA
     Dosage: 100 MG Q HS
     Dates: start: 20060905
  2. NEURONTIN [Concomitant]
  3. LAMICTAL [Concomitant]
  4. LORAZEPAM [Concomitant]
  5. RISPERDAL [Concomitant]

REACTIONS (2)
  - CARDIAC FAILURE CONGESTIVE [None]
  - MYOCARDITIS [None]
